FAERS Safety Report 7178190-X (Version None)
Quarter: 2010Q4

REPORT INFORMATION
  Report Type: 
  Country: None (occurrence: None)
  Receive Date: 20101220
  Receipt Date: 20101216
  Transmission Date: 20110411
  Serious: No
  Sender: FDA-Public Use
  Company Number: US-TEVA-257426USA

PATIENT
  Sex: Female

DRUGS (4)
  1. ALBUTEROL SULFATE AUTOHALER [Suspect]
     Dosage: PRN
     Route: 055
  2. ACETYLSALICYLIC ACID [Concomitant]
  3. OLMESARTAN MEDOXOMIL [Concomitant]
  4. COLESEVELAM HYDROCHLORIDE [Concomitant]

REACTIONS (2)
  - VISION BLURRED [None]
  - VISUAL IMPAIRMENT [None]
